FAERS Safety Report 6179856-0 (Version None)
Quarter: 2009Q2

REPORT INFORMATION
  Report Type: 
  Country: None (occurrence: None)
  Receive Date: 20090505
  Receipt Date: 20090415
  Transmission Date: 20091009
  Serious: No
  Sender: FDA-Public Use
  Company Number: US-ALEXION-A200900054

PATIENT
  Sex: Male

DRUGS (4)
  1. SOLIRIS [Suspect]
     Indication: PAROXYSMAL NOCTURNAL HAEMOGLOBINURIA
     Dosage: 600 MG, UKN
     Route: 042
     Dates: start: 20071112, end: 20071203
  2. SOLIRIS [Suspect]
     Dosage: 900 MG, Q2WKS
     Route: 042
     Dates: start: 20071212
  3. ARANESP [Concomitant]
     Dosage: UNK, Q2WKS
  4. VITAMINS NOS [Concomitant]
     Dosage: UNK
     Route: 048

REACTIONS (1)
  - FATIGUE [None]
